FAERS Safety Report 12731689 (Version 3)
Quarter: 2016Q4

REPORT INFORMATION
  Report Type: Spontaneous
  Country: US (occurrence: US)
  Receive Date: 20160912
  Receipt Date: 20161227
  Transmission Date: 20170207
  Serious: Yes (Hospitalization)
  Sender: FDA-Public Use
  Company Number: US-PFIZER INC-2014109051

PATIENT
  Age: 64 Year
  Sex: Female
  Weight: 73 kg

DRUGS (22)
  1. KENALOG [Concomitant]
     Active Substance: TRIAMCINOLONE ACETONIDE
     Dosage: UNK
     Dates: start: 20161101
  2. VITAMIN B COMPLEX [Concomitant]
     Active Substance: CYANOCOBALAMIN\DEXPANTHENOL\NIACINAMIDE\PYRIDOXINE HYDROCHLORIDE\RIBOFLAVIN 5^-PHOSPHATE SODIUM\THIAMINE HYDROCHLORIDE\VITAMIN B COMPLEX
     Dosage: UNK
  3. PROGESTERONE. [Concomitant]
     Active Substance: PROGESTERONE
     Dosage: UNK (BY MISCELLANEOUS ROUTE)
     Route: 061
  4. VITAMIN C +BIOFLAVONOIDS [Concomitant]
     Dosage: 1000 MG, UNK
  5. BIESTROGEN [Concomitant]
     Dosage: UNK
     Route: 061
  6. 7 KETO DHEA [Concomitant]
     Dosage: UNK
  7. COCONUT OIL [Concomitant]
     Active Substance: COCONUT OIL
     Dosage: 3 TEASPOON
  8. HAWTHORN [Concomitant]
     Active Substance: CRATAEGUS LAEVIGATA FRUIT
     Dosage: UNK
  9. GENOTROPIN MQ [Suspect]
     Active Substance: SOMATROPIN
     Indication: HYPOPITUITARISM
     Dosage: 0.02 MG, 1X/DAY, 6 DAYS/WEEK
  10. THYROID [Concomitant]
     Active Substance: LEVOTHYROXINE\LIOTHYRONINE
     Dosage: 65 MG, DAILY (1 (ONE) HOUR BEFORE BREAKFAST)
  11. BACTROBAN [Concomitant]
     Active Substance: MUPIROCIN\MUPIROCIN CALCIUM
     Dosage: 2 %, UNK
     Dates: start: 20161101, end: 20161115
  12. ALOE [Concomitant]
     Active Substance: ALOE
     Dosage: UNK
  13. MILK THISTLE [Concomitant]
     Active Substance: MILK THISTLE
     Dosage: UNK
  14. SELENIUM W/TOCOPHEROL [Concomitant]
     Dosage: 400 MG/ 200MEQ
  15. FLAXSEED [Concomitant]
     Active Substance: FLAX SEED
     Dosage: 1000 MG, UNK
  16. ACIDOPHILUS [Concomitant]
     Active Substance: LACTOBACILLUS ACIDOPHILUS
     Dosage: UNK, 1X/DAY
  17. PROBIOTIC COMPLEX [Concomitant]
     Dosage: UNK, 1X/DAY
  18. THYROID [Concomitant]
     Active Substance: LEVOTHYROXINE\LIOTHYRONINE
     Dosage: 65 MG, 2X/DAY
  19. MYRRH [Concomitant]
     Active Substance: MYRRH
  20. BIOTIN W/CHROMIUM [Concomitant]
     Dosage: UNK
  21. COLOSTRUM [Concomitant]
     Dosage: UNK
  22. VITAMIN D [Concomitant]
     Active Substance: CHOLECALCIFEROL
     Dosage: UNK

REACTIONS (12)
  - Thyroid disorder [Unknown]
  - Fatigue [Unknown]
  - Progesterone abnormal [Unknown]
  - Apathy [Unknown]
  - Skin disorder [Unknown]
  - Blood oestrogen abnormal [Unknown]
  - Asthenia [Unknown]
  - Incorrect product storage [Unknown]
  - Immune system disorder [Unknown]
  - Stress [Unknown]
  - Depression [Unknown]
  - Rash [Unknown]

NARRATIVE: CASE EVENT DATE: 201511
